FAERS Safety Report 9293215 (Version 2)
Quarter: 2013Q2

REPORT INFORMATION
  Report Type: Spontaneous
  Country: US (occurrence: US)
  Receive Date: 20130516
  Receipt Date: 20130531
  Transmission Date: 20140414
  Serious: No
  Sender: FDA-Public Use
  Company Number: US-PFIZER INC-2013146377

PATIENT
  Sex: Female

DRUGS (1)
  1. GLUCOTROL XL [Suspect]
     Dosage: 2 DF, 1X/DAY (2 PILLS PER DAY)

REACTIONS (2)
  - Blood glucose increased [Unknown]
  - Drug ineffective [Unknown]
